FAERS Safety Report 7605364-3 (Version None)
Quarter: 2011Q3

REPORT INFORMATION
  Report Type: 
  Country: None (occurrence: None)
  Receive Date: 20110713
  Receipt Date: 20110701
  Transmission Date: 20111222
  Serious: Yes (Hospitalization)
  Sender: FDA-Public Use
  Company Number: US-JNJFOC-20110702630

PATIENT
  Sex: Male
  Weight: 156.49 kg

DRUGS (3)
  1. REMICADE [Suspect]
     Indication: PSORIASIS
     Route: 042
     Dates: start: 20080101, end: 20100101
  2. REMICADE [Suspect]
     Route: 042
     Dates: start: 20110101
  3. STELARA [Suspect]
     Indication: PSORIASIS
     Route: 058
     Dates: start: 20110101, end: 20110101

REACTIONS (13)
  - HOT FLUSH [None]
  - ARTHRALGIA [None]
  - PAIN IN EXTREMITY [None]
  - MUSCLE SPASMS [None]
  - HYPERHIDROSIS [None]
  - PARAESTHESIA [None]
  - VISUAL IMPAIRMENT [None]
  - DIZZINESS [None]
  - DYSPNOEA [None]
  - CHEST PAIN [None]
  - DYSPEPSIA [None]
  - POLLAKIURIA [None]
  - ABDOMINAL DISTENSION [None]
